FAERS Safety Report 25346006 (Version 1)
Quarter: 2025Q2

REPORT INFORMATION
  Report Type: Spontaneous
  Country: US (occurrence: US)
  Receive Date: 20250522
  Receipt Date: 20250522
  Transmission Date: 20250717
  Serious: Yes (Life-Threatening, Hospitalization, Disabling, Other)
  Sender: SERVIER
  Company Number: US-SERVIER-S25007026

PATIENT

DRUGS (1)
  1. ASPARLAS [Suspect]
     Active Substance: CALASPARGASE PEGOL-MKNL
     Indication: T-cell type acute leukaemia
     Dosage: 4425 IU, SINGLE
     Route: 042
     Dates: start: 20250428, end: 20250428

REACTIONS (2)
  - Haemorrhagic stroke [Not Recovered/Not Resolved]
  - Cerebral thrombosis [Not Recovered/Not Resolved]

NARRATIVE: CASE EVENT DATE: 20250510
